FAERS Safety Report 5674115-4 (Version None)
Quarter: 2008Q1

REPORT INFORMATION
  Report Type: 
  Country: None (occurrence: None)
  Receive Date: 20080320
  Receipt Date: 20080310
  Transmission Date: 20080703
  Serious: No
  Sender: FDA-Public Use
  Company Number: US-JNJFOC-20080302619

PATIENT
  Sex: Male
  Weight: 131.54 kg

DRUGS (1)
  1. INVEGA [Suspect]
     Indication: MOOD ALTERED
     Route: 048

REACTIONS (1)
  - ARTHRALGIA [None]
